FAERS Safety Report 4352597-8 (Version None)
Quarter: 2004Q2

REPORT INFORMATION
  Report Type: 
  Country: None (occurrence: None)
  Receive Date: 20040420
  Receipt Date: 20040312
  Transmission Date: 20050107
  Serious: No
  Sender: FDA-Public Use
  Company Number: 2004203695US

PATIENT
  Sex: 0

DRUGS (1)
  1. INSPRA [Suspect]

REACTIONS (1)
  - CONDITION AGGRAVATED [None]
